FAERS Safety Report 7770864-2 (Version None)
Quarter: 2011Q3

REPORT INFORMATION
  Report Type: 
  Country: None (occurrence: None)
  Receive Date: 20110922
  Receipt Date: 20110315
  Transmission Date: 20111222
  Serious: No
  Sender: FDA-Public Use
  Company Number: US-ASTRAZENECA-2011SE14635

PATIENT
  Sex: Female

DRUGS (4)
  1. SEROQUEL [Suspect]
     Route: 048
     Dates: start: 20110201
  2. SEROQUEL [Suspect]
     Route: 048
  3. SEROQUEL [Suspect]
     Route: 048
     Dates: end: 20110101
  4. SEROQUEL [Suspect]
     Dosage: 200 MG TO BE CUT IN QUARTERS AND TAKING ONE QUARTER
     Route: 048
     Dates: start: 20110301, end: 20110301

REACTIONS (4)
  - MALAISE [None]
  - HEART RATE INCREASED [None]
  - DRUG DOSE OMISSION [None]
  - IMPAIRED WORK ABILITY [None]
